FAERS Safety Report 17104916 (Version 1)
Quarter: 2019Q4

REPORT INFORMATION
  Report Type: Spontaneous
  Country: US (occurrence: US)
  Receive Date: 20191107
  Receipt Date: 20191107
  Transmission Date: 20200122
  Serious: No
  Sender: FDA-Public Use
  Company Number: None

PATIENT
  Age: 57 Year
  Sex: Female
  Weight: 86.18 kg

DRUGS (1)
  1. LEVOTHYROXINE 50MCG [Suspect]
     Active Substance: LEVOTHYROXINE
     Indication: HYPOTHYROIDISM
     Dosage: ?          QUANTITY:50 UG MICROGRAM(S);?
     Route: 048
     Dates: start: 20190803, end: 2019

REACTIONS (10)
  - Oral mucosal blistering [None]
  - Muscle spasms [None]
  - Dizziness [None]
  - Pain [None]
  - Tinnitus [None]
  - Dyspnoea [None]
  - Mouth ulceration [None]
  - Peripheral swelling [None]
  - Alopecia [None]
  - Pain in extremity [None]

NARRATIVE: CASE EVENT DATE: 20190907
